FAERS Safety Report 22136199 (Version 1)
Quarter: 2023Q1

REPORT INFORMATION
  Report Type: Report from Study
  Country: DE (occurrence: DE)
  Receive Date: 20230324
  Receipt Date: 20230324
  Transmission Date: 20230418
  Serious: Yes (Hospitalization, Other)
  Sender: FDA-Public Use
  Company Number: DE-EMA-DD-20200114-korti_s1-120829

PATIENT
  Age: 47 Year
  Sex: Male

DRUGS (10)
  1. BACLOFEN [Suspect]
     Active Substance: BACLOFEN
     Indication: Product used for unknown indication
     Route: 065
  2. OCRELIZUMAB [Suspect]
     Active Substance: OCRELIZUMAB
     Indication: Primary progressive multiple sclerosis
     Dosage: 300 MG, UNK
     Route: 042
  3. OCRELIZUMAB [Suspect]
     Active Substance: OCRELIZUMAB
     Dosage: 600 MG, UNK (MAINTENANCE DOSE)
     Route: 065
     Dates: start: 20190408
  4. OCRELIZUMAB [Suspect]
     Active Substance: OCRELIZUMAB
     Dosage: 300MG
     Route: 042
     Dates: start: 20181024
  5. OCRELIZUMAB [Suspect]
     Active Substance: OCRELIZUMAB
     Dates: start: 20191030
  6. OCRELIZUMAB [Suspect]
     Active Substance: OCRELIZUMAB
     Dosage: 600 MG, UNK (MAINTENANCE DOSE) ,
     Dates: start: 20181024
  7. DALFAMPRIDINE [Suspect]
     Active Substance: DALFAMPRIDINE
     Indication: Product used for unknown indication
     Route: 065
  8. RIVOTRIL [Concomitant]
     Active Substance: CLONAZEPAM
     Indication: Product used for unknown indication
     Route: 065
  9. D3 +K2 [Concomitant]
     Indication: Product used for unknown indication
     Dosage: 4 GTT DAILY; 4 DRP, QD
  10. OPIPRAMOL [Concomitant]
     Active Substance: OPIPRAMOL
     Indication: Product used for unknown indication

REACTIONS (9)
  - Multiple sclerosis relapse [Not Recovered/Not Resolved]
  - Cystitis noninfective [Recovered/Resolved]
  - Gait disturbance [Not Recovered/Not Resolved]
  - Posture abnormal [Recovered/Resolved]
  - Antinuclear antibody increased [Unknown]
  - Hypotonia [Recovered/Resolved]
  - Drug ineffective [Unknown]
  - Nasopharyngitis [Recovered/Resolved]
  - Arthralgia [Recovering/Resolving]

NARRATIVE: CASE EVENT DATE: 20181109
